FAERS Safety Report 12756548 (Version 1)
Quarter: 2016Q3

REPORT INFORMATION
  Report Type: Spontaneous
  Country: NZ (occurrence: NZ)
  Receive Date: 20160917
  Receipt Date: 20160917
  Transmission Date: 20161109
  Serious: Yes (Hospitalization)
  Sender: FDA-Public Use
  Company Number: NZ-ABBVIE-16K-118-1661162-00

PATIENT
  Age: 36 Year
  Sex: Female
  Weight: 58.3 kg

DRUGS (4)
  1. METHOTREXATE. [Concomitant]
     Active Substance: METHOTREXATE
     Indication: PSORIATIC ARTHROPATHY
     Route: 048
     Dates: start: 2006
  2. HUMIRA [Suspect]
     Active Substance: ADALIMUMAB
     Indication: RHEUMATOID ARTHRITIS
     Route: 058
     Dates: start: 2012, end: 201605
  3. HUMIRA [Suspect]
     Active Substance: ADALIMUMAB
     Indication: PSORIATIC ARTHROPATHY
     Route: 058
     Dates: start: 201608
  4. FOLIC ACID. [Concomitant]
     Active Substance: FOLIC ACID
     Indication: PSORIATIC ARTHROPATHY
     Dates: start: 2006

REACTIONS (7)
  - Pleural thickening [Unknown]
  - Pneumonia [Recovered/Resolved]
  - Tuberculosis [Recovered/Resolved]
  - Pleural effusion [Unknown]
  - Pulmonary mass [Unknown]
  - Night sweats [Unknown]
  - Lung consolidation [Unknown]

NARRATIVE: CASE EVENT DATE: 201605
